FAERS Safety Report 9146640 (Version 2)
Quarter: 2013Q1

REPORT INFORMATION
  Report Type: Report from Study
  Country: US (occurrence: US)
  Receive Date: 20130307
  Receipt Date: 20130325
  Transmission Date: 20140127
  Serious: Yes (Hospitalization)
  Sender: FDA-Public Use
  Company Number: US-009507513-1303USA001577

PATIENT
  Age: 66 Year
  Sex: Female
  Weight: 49.43 kg

DRUGS (8)
  1. RIDAFOROLIMUS [Suspect]
     Indication: RENAL CELL CARCINOMA
     Dosage: 40 MG, Q5W
     Route: 048
     Dates: start: 20130214
  2. VORINOSTAT [Suspect]
     Indication: RENAL CELL CARCINOMA
     Dosage: 100 MG, BID X 3 DAYS Q WK
     Route: 048
     Dates: start: 20130214
  3. ESTER-C [Concomitant]
  4. VITAMIN B COMPLEX [Concomitant]
  5. CALCIUM (UNSPECIFIED) (+) VITAMIN D (UNSPECIFIED) [Concomitant]
  6. UBIDECARENONE [Concomitant]
  7. TYLENOL [Concomitant]
  8. OMEGA-3 MARINE TRIGLYCERIDES [Concomitant]

REACTIONS (1)
  - Device related infection [Unknown]
